FAERS Safety Report 8762727 (Version 2)
Quarter: 2012Q4

REPORT INFORMATION
  Report Type: 
  Country: FR (occurrence: FR)
  Receive Date: 20120831
  Receipt Date: 20120907
  Transmission Date: 20130627
  Serious: Yes (Hospitalization, Other)
  Sender: FDA-Public Use
  Company Number: FR-ROCHE-1109241

PATIENT
  Age: 54 Year
  Sex: Female
  Weight: 47 kg

DRUGS (6)
  1. XOLAIR [Suspect]
     Indication: ASTHMA
     Route: 065
     Dates: start: 20120530
  2. XOLAIR [Suspect]
     Route: 065
     Dates: start: 201206
  3. SINGULAIR [Concomitant]
     Route: 065
     Dates: start: 20080605
  4. AERIUS [Concomitant]
     Route: 065
     Dates: start: 20080605
  5. SYMBICORT [Concomitant]
     Route: 065
     Dates: start: 20080605
  6. VENTOLINE [Concomitant]
     Route: 065
     Dates: start: 20080605

REACTIONS (8)
  - Pancreatitis [Recovering/Resolving]
  - Haematoma [Recovered/Resolved]
  - Abdominal pain [Unknown]
  - Biliary dilatation [Unknown]
  - Splenic haemorrhage [Unknown]
  - Peritoneal haemorrhage [Unknown]
  - Pseudocyst [Unknown]
  - Pancreatitis acute [Unknown]
